FAERS Safety Report 8358771 (Version 2)
Quarter: 2017Q4

REPORT INFORMATION
  Report Type: Spontaneous
  Country: PL (occurrence: PL)
  Receive Date: 20120125
  Receipt Date: 20171129
  Transmission Date: 20180321
  Serious: Yes (Death, Hospitalization)
  Sender: FDA-Public Use
  Company Number: PL-PFIZER INC-2012016742

PATIENT
  Age: 49 Year
  Sex: Male

DRUGS (2)
  1. G-CSF [Concomitant]
     Active Substance: GRANULOCYTE COLONY-STIMULATING FACTOR NOS
     Indication: PROPHYLAXIS
     Dosage: 0.3 MG, FOR 5 DAYS
     Route: 058
     Dates: start: 201002
  2. CLADRIBINE. [Suspect]
     Active Substance: CLADRIBINE
     Indication: HAIRY CELL LEUKAEMIA
     Dosage: 12 MG, DAILY (0.12 MG/KG IN 2-HOURS INFUSION) FOR 5 DAYS
     Route: 042
     Dates: start: 201002

REACTIONS (2)
  - Bone marrow failure [Fatal]
  - Aspergillus infection [Fatal]
